FAERS Safety Report 15748071 (Version 1)
Quarter: 2018Q4

REPORT INFORMATION
  Report Type: Spontaneous
  Country: GB (occurrence: GB)
  Receive Date: 20181221
  Receipt Date: 20181221
  Transmission Date: 20190205
  Serious: Yes (Hospitalization)
  Sender: FDA-Public Use
  Company Number: GB-TEVA-2018-GB-989477

PATIENT
  Age: 87 Year
  Sex: Male
  Weight: 80 kg

DRUGS (9)
  1. CLARITHROMYCIN. [Suspect]
     Active Substance: CLARITHROMYCIN
     Indication: LOWER RESPIRATORY TRACT INFECTION
     Dosage: 1000 MILLIGRAM DAILY;
     Route: 042
     Dates: start: 20181119, end: 20181122
  2. LORATADINE. [Concomitant]
     Active Substance: LORATADINE
  3. CO-AMOXICLAV [Concomitant]
     Active Substance: AMOXICILLIN\CLAVULANATE POTASSIUM
     Dosage: 3.6 GRAM DAILY;
     Route: 042
  4. ENOXAPARIN [Concomitant]
     Active Substance: ENOXAPARIN
  5. TAMSULOSIN [Concomitant]
     Active Substance: TAMSULOSIN
  6. PARACETAMOL [Concomitant]
     Active Substance: ACETAMINOPHEN
  7. ALLOPURINOL. [Concomitant]
     Active Substance: ALLOPURINOL
  8. ABASAGLAR [Concomitant]
     Active Substance: INSULIN GLARGINE
  9. RANITIDINE. [Concomitant]
     Active Substance: RANITIDINE

REACTIONS (4)
  - Blister [Recovering/Resolving]
  - Erythema [Recovering/Resolving]
  - Rash maculo-papular [Recovering/Resolving]
  - Extravasation [Recovering/Resolving]

NARRATIVE: CASE EVENT DATE: 20181119
